FAERS Safety Report 18291588 (Version 3)
Quarter: 2020Q3

REPORT INFORMATION
  Report Type: Spontaneous
  Country: GB (occurrence: GB)
  Receive Date: 20200921
  Receipt Date: 20200929
  Transmission Date: 20201103
  Serious: Yes (Hospitalization, Other)
  Sender: FDA-Public Use
  Company Number: GB-PFIZER INC-2020360900

PATIENT
  Age: 43 Year
  Sex: Female

DRUGS (1)
  1. DOXORUBICIN HCL [Suspect]
     Active Substance: DOXORUBICIN HYDROCHLORIDE
     Indication: LEIOMYOSARCOMA
     Dosage: UNK, CYCLIC (25% DOSE REDUCTION)

REACTIONS (2)
  - Paraneoplastic dermatomyositis [Recovering/Resolving]
  - Febrile neutropenia [Unknown]
